FAERS Safety Report 9169415 (Version 2)
Quarter: 2013Q2

REPORT INFORMATION
  Report Type: Spontaneous
  Country: ES (occurrence: ES)
  Receive Date: 20130318
  Receipt Date: 20130411
  Transmission Date: 20140414
  Serious: Yes (Other)
  Sender: FDA-Public Use
  Company Number: ES-PFIZER INC-2013063209

PATIENT
  Age: 42 Year
  Sex: Female
  Weight: 144 kg

DRUGS (7)
  1. LYRICA [Suspect]
     Indication: GENERALISED ANXIETY DISORDER
     Dosage: UNTIL A DOSE OF 450 MG
     Route: 048
     Dates: start: 20121106
  2. LYRICA [Suspect]
     Dosage: 75 MG, 2X/DAY
  3. ANTABUS [Concomitant]
     Dosage: 1 DF, 1X/DAY (1-0-0)
  4. ESERTIA [Concomitant]
     Dosage: 1 DF, 1X/DAY (1-0-0)
  5. QUETIAPINE [Concomitant]
     Dosage: 2 DF, 1X/DAY
  6. OMEPRAZOLE [Concomitant]
     Dosage: 1 DF DAILY
  7. LARGACTIL [Concomitant]
     Dosage: 1 DF, 1X/DAY

REACTIONS (3)
  - Headache [Recovered/Resolved]
  - Type 2 diabetes mellitus [Not Recovered/Not Resolved]
  - Hypertension [Recovering/Resolving]
